FAERS Safety Report 9283562 (Version 1)
Quarter: 2013Q2

REPORT INFORMATION
  Report Type: Spontaneous
  Country: FI (occurrence: FI)
  Receive Date: 20130510
  Receipt Date: 20130510
  Transmission Date: 20140414
  Serious: Yes (Other)
  Sender: FDA-Public Use
  Company Number: FI-SANOFI-AVENTIS-2013SA045035

PATIENT
  Age: 52 Year
  Sex: Female

DRUGS (6)
  1. DOCETAXEL [Suspect]
     Indication: BREAST CANCER
     Dosage: 6 CYCLES
     Route: 065
     Dates: start: 201206
  2. DOCETAXEL [Suspect]
     Indication: BREAST CANCER
     Route: 065
  3. HERCEPTIN [Suspect]
     Indication: BREAST CANCER
     Route: 065
     Dates: start: 201105
  4. HERCEPTIN [Suspect]
     Indication: BREAST CANCER
     Dosage: 6 CYCLES
     Route: 065
     Dates: start: 201206
  5. NEULASTA [Concomitant]
     Route: 065
     Dates: start: 201206
  6. PERTUZUMAB [Concomitant]
     Route: 065
     Dates: start: 201206

REACTIONS (3)
  - Breast cancer metastatic [Recovering/Resolving]
  - Oedema peripheral [Unknown]
  - Pleural effusion [Unknown]
